FAERS Safety Report 8733612 (Version 2)
Quarter: 2012Q4

REPORT INFORMATION
  Report Type: 
  Country: US (occurrence: US)
  Receive Date: 20120821
  Receipt Date: 20120903
  Transmission Date: 20130627
  Serious: Yes (Other)
  Sender: FDA-Public Use
  Company Number: US-PFIZER INC-2012200031

PATIENT
  Age: 42 Year

DRUGS (1)
  1. PREMPRO [Suspect]
     Dosage: 0.45 -1.5 mg 1 tab daily

REACTIONS (1)
  - Back disorder [Unknown]
